FAERS Safety Report 5771424-5 (Version None)
Quarter: 2008Q2

REPORT INFORMATION
  Report Type: 
  Country: None (occurrence: None)
  Receive Date: 20080613
  Receipt Date: 20080521
  Transmission Date: 20081010
  Serious: Yes (Hospitalization, Other)
  Sender: FDA-Public Use
  Company Number: PHHO2008US06756

PATIENT
  Sex: Female
  Weight: 59.5 kg

DRUGS (2)
  1. STI571/CGP57148B T35717+CAPS [Suspect]
     Indication: METASTATIC NEOPLASM
     Dosage: 800 MG, BID
     Route: 048
     Dates: start: 20080204
  2. XELODA [Concomitant]
     Indication: METASTATIC NEOPLASM
     Dosage: 650 MG/M2, BID
     Dates: start: 20080204

REACTIONS (3)
  - DYSPNOEA [None]
  - PLEURAL EFFUSION [None]
  - THORACIC CAVITY DRAINAGE [None]
